FAERS Safety Report 9130130 (Version 2)
Quarter: 2013Q2

REPORT INFORMATION
  Report Type: Spontaneous
  Country: US (occurrence: US)
  Receive Date: 20130228
  Receipt Date: 20130401
  Transmission Date: 20140414
  Serious: No
  Sender: FDA-Public Use
  Company Number: US-PFIZER INC-2013068231

PATIENT
  Age: 73 Year
  Sex: Female
  Weight: 81.63 kg

DRUGS (16)
  1. TOVIAZ [Suspect]
     Indication: BLADDER DISORDER
     Dosage: 8 MG, 1X/DAY
     Dates: start: 201212, end: 2013
  2. TOVIAZ [Suspect]
     Indication: URINARY INCONTINENCE
     Dosage: UNK
     Route: 048
     Dates: start: 201302, end: 201303
  3. TOVIAZ [Suspect]
     Indication: HYPERTONIC BLADDER
  4. SANCTURA [Suspect]
     Indication: BLADDER DISORDER
     Dosage: 20 MG, 2X/DAY
     Route: 048
  5. OXYBUTYNIN [Suspect]
     Dosage: UNK
  6. MYRBETRIQ [Concomitant]
     Indication: BLADDER DISORDER
     Dosage: 25 MG, 1X/DAY
     Route: 048
  7. ADDERALL [Concomitant]
     Dosage: 15 MG, 2X/DAY
     Route: 048
  8. CALTRATE [Concomitant]
     Dosage: 600 MG, 1X/DAY
     Route: 048
  9. FISH OIL [Concomitant]
     Dosage: 1 DF, 1X/DAY
     Route: 048
  10. MECLIZINE HYDROCHLORIDE [Concomitant]
     Dosage: 12.5 MG, 3X/DAY (AS NEEDED)
     Route: 048
  11. SYNTHROID [Concomitant]
     Dosage: 50 UG, 1X/DAY (IN THE MORNING)
     Route: 048
  12. TOPAMAX [Concomitant]
     Dosage: 100 MG, 1X/DAY
     Route: 048
  13. VITAMIN E [Concomitant]
     Dosage: 1 DF, 1X/DAY
     Route: 048
  14. XANAX [Concomitant]
     Dosage: 1 MG, 4X/DAY
     Route: 048
  15. ZOCOR [Concomitant]
     Dosage: 80 MG, 1X/DAY (AT BEDTIME)
     Route: 048
  16. ZOLOFT [Concomitant]
     Dosage: 300 MG, 1X/DAY
     Route: 048

REACTIONS (3)
  - Drug ineffective [Unknown]
  - Alopecia [Not Recovered/Not Resolved]
  - Drug hypersensitivity [Unknown]
